FAERS Safety Report 9779937 (Version 8)
Quarter: 2014Q3

REPORT INFORMATION
  Report Type: Report from Study
  Country: US (occurrence: US)
  Receive Date: 20131223
  Receipt Date: 20140804
  Transmission Date: 20150326
  Serious: Yes (Congenital Anomaly, Other)
  Sender: FDA-Public Use
  Company Number: US-GLAXOSMITHKLINE-A1054520A

PATIENT
  Age: 0 Year
  Sex: Male
  Weight: 3 kg

DRUGS (6)
  1. PREDNISONE. [Concomitant]
     Active Substance: PREDNISONE
     Indication: PRODUCT USED FOR UNKNOWN INDICATION
     Route: 064
  2. BENLYSTA [Suspect]
     Active Substance: BELIMUMAB
     Indication: PRODUCT USED FOR UNKNOWN INDICATION
     Dosage: 900MG UNKNOWN
     Route: 064
     Dates: start: 20111013
  3. ANTI MALARIALS [Concomitant]
     Route: 064
  4. FOLATE [Concomitant]
     Active Substance: FOLATE SODIUM
     Route: 064
  5. PLAQUENIL [Concomitant]
     Active Substance: HYDROXYCHLOROQUINE SULFATE
     Indication: PRODUCT USED FOR UNKNOWN INDICATION
     Route: 064
  6. PRENATAL VITAMIN [Concomitant]
     Active Substance: VITAMINS
     Route: 064

REACTIONS (3)
  - Foetal exposure during pregnancy [Unknown]
  - Tenotomy [Recovering/Resolving]
  - Talipes [Recovering/Resolving]

NARRATIVE: CASE EVENT DATE: 20130911
